FAERS Safety Report 18753228 (Version 1)
Quarter: 2021Q1

REPORT INFORMATION
  Report Type: Spontaneous
  Country: US (occurrence: US)
  Receive Date: 20210118
  Receipt Date: 20210118
  Transmission Date: 20210419
  Serious: Yes (Hospitalization, Other)
  Sender: FDA-Public Use
  Company Number: US-PURDUE-USA-2020-0198526

PATIENT
  Sex: Male

DRUGS (21)
  1. HYDROCODONE BITARTRATE AND ACETAMINOPHEN [Suspect]
     Active Substance: ACETAMINOPHEN\HYDROCODONE BITARTRATE
     Indication: ARTHRITIS
     Dosage: UNKNOWN
     Route: 048
  2. HYDROMORPHONE HYDROCHLORIDE IMMEDIATE?RELEASE (SIMILAR TO IND 38,424) [Suspect]
     Active Substance: HYDROMORPHONE HYDROCHLORIDE
     Indication: ARTHRITIS
     Dosage: UNKNOWN
     Route: 048
  3. OXYCODONE HCL TABLETS (RHODES 91?490) [Suspect]
     Active Substance: OXYCODONE HYDROCHLORIDE
     Indication: FRACTURE
  4. OXYCODONE HCL TABLETS (RHODES 91?490) [Suspect]
     Active Substance: OXYCODONE HYDROCHLORIDE
     Indication: OSTEOPOROSIS
  5. OXYCODONE/ ACETAMINOPHEN TABLETS [Suspect]
     Active Substance: ACETAMINOPHEN\OXYCODONE HYDROCHLORIDE
     Indication: ARTHRITIS
     Dosage: UNKNOWN
     Route: 048
  6. OXYCONTIN [Suspect]
     Active Substance: OXYCODONE HYDROCHLORIDE
     Indication: OSTEOPOROSIS
  7. HYDROCODONE BITARTRATE AND ACETAMINOPHEN [Suspect]
     Active Substance: ACETAMINOPHEN\HYDROCODONE BITARTRATE
     Indication: OSTEOPOROSIS
  8. HYDROMORPHONE HYDROCHLORIDE IMMEDIATE?RELEASE (SIMILAR TO IND 38,424) [Suspect]
     Active Substance: HYDROMORPHONE HYDROCHLORIDE
     Indication: OSTEOPOROSIS
  9. OXYCODONE HCL CR TABLETS (SIMILAR TO NDA 22?272) [Suspect]
     Active Substance: OXYCODONE HYDROCHLORIDE
     Indication: ARTHRITIS
     Dosage: UNKNOWN
     Route: 048
  10. OXYCODONE/ ACETAMINOPHEN TABLETS [Suspect]
     Active Substance: ACETAMINOPHEN\OXYCODONE HYDROCHLORIDE
     Indication: OSTEOPOROSIS
  11. OXYCODONE/ ACETAMINOPHEN TABLETS [Suspect]
     Active Substance: ACETAMINOPHEN\OXYCODONE HYDROCHLORIDE
     Indication: FRACTURE
  12. HYDROCODONE BITARTRATE AND ACETAMINOPHEN [Suspect]
     Active Substance: ACETAMINOPHEN\HYDROCODONE BITARTRATE
     Indication: FRACTURE
  13. HYDROMORPHONE HCL ORAL SOLUTION (RHODES) [Suspect]
     Active Substance: HYDROMORPHONE HYDROCHLORIDE
     Indication: ARTHRITIS
     Dosage: UNKNOWN
     Route: 048
  14. OXYCODONE HCL CR TABLETS (SIMILAR TO NDA 22?272) [Suspect]
     Active Substance: OXYCODONE HYDROCHLORIDE
     Indication: FRACTURE
  15. HYDROMORPHONE HYDROCHLORIDE IMMEDIATE?RELEASE (SIMILAR TO IND 38,424) [Suspect]
     Active Substance: HYDROMORPHONE HYDROCHLORIDE
     Indication: FRACTURE
  16. HYDROMORPHONE HCL ORAL SOLUTION (RHODES) [Suspect]
     Active Substance: HYDROMORPHONE HYDROCHLORIDE
     Indication: OSTEOPOROSIS
  17. OXYCONTIN [Suspect]
     Active Substance: OXYCODONE HYDROCHLORIDE
     Indication: ARTHRITIS
     Dosage: UNKNOWN
     Route: 048
  18. OXYCONTIN [Suspect]
     Active Substance: OXYCODONE HYDROCHLORIDE
     Indication: FRACTURE
  19. HYDROMORPHONE HCL ORAL SOLUTION (RHODES) [Suspect]
     Active Substance: HYDROMORPHONE HYDROCHLORIDE
     Indication: FRACTURE
  20. OXYCODONE HCL CR TABLETS (SIMILAR TO NDA 22?272) [Suspect]
     Active Substance: OXYCODONE HYDROCHLORIDE
     Indication: OSTEOPOROSIS
  21. OXYCODONE HCL TABLETS (RHODES 91?490) [Suspect]
     Active Substance: OXYCODONE HYDROCHLORIDE
     Indication: ARTHRITIS
     Dosage: UNKNOWN
     Route: 048

REACTIONS (4)
  - Withdrawal syndrome [None]
  - Drug dependence [Unknown]
  - Hospitalisation [Unknown]
  - Overdose [Unknown]
